FAERS Safety Report 7865438-9 (Version None)
Quarter: 2011Q4

REPORT INFORMATION
  Report Type: 
  Country: None (occurrence: None)
  Receive Date: 20111028
  Receipt Date: 20101228
  Transmission Date: 20120403
  Serious: No
  Sender: FDA-Public Use
  Company Number: US-GLAXOSMITHKLINE-A0901703A

PATIENT
  Age: 83 Year
  Sex: Female

DRUGS (10)
  1. PROAIR HFA [Concomitant]
  2. DIGOXIN [Concomitant]
  3. ADVAIR DISKUS 100/50 [Suspect]
     Indication: PRODUCT USED FOR UNKNOWN INDICATION
     Dosage: 1PUFF TWICE PER DAY
     Route: 055
  4. ATENOLOL [Concomitant]
  5. ISOSORBIDE DINITRATE [Concomitant]
  6. FUROSEMIDE [Concomitant]
  7. ALBUTEROL [Concomitant]
     Route: 055
  8. SPIRIVA [Concomitant]
  9. STEROIDS [Concomitant]
  10. LASIX [Concomitant]

REACTIONS (2)
  - PRODUCT QUALITY ISSUE [None]
  - DRUG INEFFECTIVE [None]
